FAERS Safety Report 23797241 (Version 1)
Quarter: 2024Q2

REPORT INFORMATION
  Report Type: Spontaneous
  Country: FR (occurrence: FR)
  Receive Date: 20240430
  Receipt Date: 20240430
  Transmission Date: 20240715
  Serious: Yes (Other)
  Sender: FDA-Public Use
  Company Number: FR-AFSSAPS-ST2024000664

PATIENT
  Age: 72 Year
  Sex: Female

DRUGS (3)
  1. AMOXICILLIN [Suspect]
     Active Substance: AMOXICILLIN
     Indication: Bronchitis
     Dosage: UNK,UNKNOWN DOSAGE
     Route: 048
     Dates: start: 202306, end: 202306
  2. MUCOMYST [Concomitant]
     Active Substance: ACETYLCYSTEINE
     Indication: Bronchitis
     Dosage: UNK
     Route: 048
     Dates: start: 202306
  3. SACCHAROMYCES CEREVISIAE\SODIUM SULFATE [Concomitant]
     Active Substance: SACCHAROMYCES CEREVISIAE\SODIUM SULFATE
     Indication: Bronchitis
     Dosage: UNK
     Route: 045
     Dates: start: 202306

REACTIONS (1)
  - Dermatitis bullous [Recovered/Resolved]

NARRATIVE: CASE EVENT DATE: 20230601
